FAERS Safety Report 21488418 (Version 1)
Quarter: 2022Q4

REPORT INFORMATION
  Report Type: Spontaneous
  Country: JP (occurrence: JP)
  Receive Date: 20221021
  Receipt Date: 20221021
  Transmission Date: 20230113
  Serious: Yes (Other)
  Sender: FDA-Public Use
  Company Number: JP-SUN PHARMACEUTICAL INDUSTRIES LTD-2022R1-359603

PATIENT
  Age: 61 Year
  Sex: Female
  Weight: 61.5 kg

DRUGS (3)
  1. CARBOPLATIN [Suspect]
     Active Substance: CARBOPLATIN
     Indication: Malignant melanoma
     Dosage: UNK/AREA UNDER THE CONCENTRATION-TIME CURVE, 5
     Route: 065
  2. PACLITAXEL [Suspect]
     Active Substance: PACLITAXEL
     Indication: Malignant melanoma
     Dosage: 200 MILLIGRAM/SQ. METER
     Route: 065
  3. BEVACIZUMAB [Suspect]
     Active Substance: BEVACIZUMAB
     Indication: Malignant melanoma
     Dosage: 15 MILLIGRAM/KILOGRAM
     Route: 065

REACTIONS (1)
  - Disease progression [Unknown]
